FAERS Safety Report 22172301 (Version 1)
Quarter: 2023Q2

REPORT INFORMATION
  Report Type: Spontaneous
  Country: US (occurrence: None)
  Receive Date: 20230403
  Receipt Date: 20230403
  Transmission Date: 20230722
  Serious: Yes (Other)
  Sender: FDA-Public Use
  Company Number: None

PATIENT
  Age: 45 Year
  Sex: Female

DRUGS (2)
  1. JADENU [Suspect]
     Active Substance: DEFERASIROX
     Dosage: OTHER FREQUENCY : AM;?
  2. JADENU [Suspect]
     Active Substance: DEFERASIROX
     Dosage: OTHER FREQUENCY : PM;?

REACTIONS (7)
  - Fatigue [None]
  - Abdominal pain upper [None]
  - Diarrhoea [None]
  - Therapy interrupted [None]
  - Memory impairment [None]
  - Haemoglobin decreased [None]
  - Arthralgia [None]

NARRATIVE: CASE EVENT DATE: 20230327
